FAERS Safety Report 5832404-4 (Version None)
Quarter: 2008Q3

REPORT INFORMATION
  Report Type: 
  Country: None (occurrence: None)
  Receive Date: 20080731
  Receipt Date: 20080731
  Transmission Date: 20090109
  Serious: Yes (Life-Threatening, Hospitalization, Disabling, Other)
  Sender: FDA-Public Use
  Company Number: None

PATIENT
  Age: 46 Year
  Sex: Male
  Weight: 99.7913 kg

DRUGS (1)
  1. LARIAM [Suspect]
     Indication: MALARIA
     Dosage: 60  ONE PER DAY  BUCCAL
     Route: 002
     Dates: start: 20030528, end: 20030726

REACTIONS (26)
  - ANXIETY [None]
  - ARTHRALGIA [None]
  - ASTHMA [None]
  - BACK DISORDER [None]
  - BONE DISORDER [None]
  - CONFUSIONAL STATE [None]
  - DEPRESSION [None]
  - DYSPEPSIA [None]
  - DYSPNOEA [None]
  - FATIGUE [None]
  - HYPERSENSITIVITY [None]
  - HYPERTENSION [None]
  - MEMORY IMPAIRMENT [None]
  - MOOD ALTERED [None]
  - MUSCLE SPASMS [None]
  - MUSCULAR WEAKNESS [None]
  - MYALGIA [None]
  - OEDEMA [None]
  - PALPITATIONS [None]
  - RASH [None]
  - RESTLESSNESS [None]
  - SUICIDAL IDEATION [None]
  - TACHYCARDIA [None]
  - TINNITUS [None]
  - URTICARIA [None]
  - VISUAL IMPAIRMENT [None]
